FAERS Safety Report 9736009 (Version 1)
Quarter: 2013Q4

REPORT INFORMATION
  Report Type: Spontaneous
  Country: US (occurrence: None)
  Receive Date: 20131205
  Receipt Date: 20131205
  Transmission Date: 20140711
  Serious: Yes (Other)
  Sender: FDA-Public Use
  Company Number: None

PATIENT
  Age: 73 Year
  Sex: Female
  Weight: 82.1 kg

DRUGS (1)
  1. VENOFER [Suspect]
     Indication: RENAL FAILURE CHRONIC
     Route: 042
     Dates: start: 20131023, end: 20131106

REACTIONS (4)
  - Burning sensation [None]
  - Infusion site extravasation [None]
  - Infusion site bruising [None]
  - Pain [None]
